FAERS Safety Report 25549387 (Version 1)
Quarter: 2025Q3

REPORT INFORMATION
  Report Type: Spontaneous
  Country: EU (occurrence: EU)
  Receive Date: 20250714
  Receipt Date: 20250714
  Transmission Date: 20251020
  Serious: Yes (Other)
  Sender: TEVA
  Company Number: None

PATIENT
  Age: 28 Year
  Sex: Female

DRUGS (6)
  1. QUETIAPINE [Interacting]
     Active Substance: QUETIAPINE
     Indication: Product used for unknown indication
     Dosage: QUETIAPINE TEVA-RATIO, 60 TABLETS
     Route: 065
     Dates: start: 20250401
  2. BROMAZEPAM NORMON [Concomitant]
     Indication: Mixed anxiety and depressive disorder
     Dates: start: 20200101
  3. BUPROPION HYDROCHLORIDE [Interacting]
     Active Substance: BUPROPION HYDROCHLORIDE
     Indication: Attention deficit hyperactivity disorder
     Dosage: 30 TABLETS
     Route: 048
     Dates: start: 20250601
  4. ETHINYL ESTRADIOL\LEVONORGESTREL [Concomitant]
     Active Substance: ETHINYL ESTRADIOL\LEVONORGESTREL
     Indication: Polycystic ovarian syndrome
     Dates: start: 20180101
  5. FLUOXETINE HYDROCHLORIDE [Interacting]
     Active Substance: FLUOXETINE HYDROCHLORIDE
     Indication: Depression
     Dosage: DISPERSIBLE TABLETS EFG, 60 TABLETS
     Route: 048
     Dates: start: 20180101
  6. ZOLPIDEM [Concomitant]
     Active Substance: ZOLPIDEM TARTRATE
     Indication: Product used for unknown indication
     Dosage: ZOLPIDEM TEVA-RATIOPHARM, 30 TABLETS (PVC/PE/PVDC/AL BLISTER)
     Dates: start: 20200101

REACTIONS (6)
  - Agitation [Unknown]
  - Fall [Unknown]
  - Dizziness [Unknown]
  - Vision blurred [Unknown]
  - Tremor [Unknown]
  - Hypertension [Unknown]

NARRATIVE: CASE EVENT DATE: 20250601
